FAERS Safety Report 5693234-X (Version None)
Quarter: 2008Q2

REPORT INFORMATION
  Report Type: 
  Country: None (occurrence: None)
  Receive Date: 20080403
  Receipt Date: 20080328
  Transmission Date: 20081010
  Serious: Yes (Death)
  Sender: FDA-Public Use
  Company Number: PHHY2008BR04079

PATIENT
  Age: 78 Year
  Sex: Female

DRUGS (4)
  1. EXELON [Suspect]
     Indication: DEMENTIA ALZHEIMER'S TYPE
     Route: 048
  2. RIVOTRIL [Concomitant]
     Indication: SLEEP DISORDER
  3. PROLOPA [Concomitant]
     Indication: PARKINSON'S DISEASE
  4. RISPERIDONE [Concomitant]

REACTIONS (3)
  - ATROPHY [None]
  - DEMENTIA ALZHEIMER'S TYPE [None]
  - DYSPHAGIA [None]
